FAERS Safety Report 18295403 (Version 1)
Quarter: 2020Q3

REPORT INFORMATION
  Report Type: Spontaneous
  Country: US (occurrence: US)
  Receive Date: 20200922
  Receipt Date: 20200922
  Transmission Date: 20201103
  Serious: Yes (Other)
  Sender: FDA-Public Use
  Company Number: None

PATIENT
  Age: 35 Year
  Sex: Female
  Weight: 78.75 kg

DRUGS (3)
  1. ALBUTEROL SULFATE INHALED AEROSOL [Suspect]
     Active Substance: ALBUTEROL SULFATE
     Indication: ASTHMA
     Dosage: ?          QUANTITY:200 PUFF(S);?
     Route: 055
     Dates: start: 20190101, end: 20200922
  2. ZOLOFT [Concomitant]
     Active Substance: SERTRALINE HYDROCHLORIDE
  3. BUTABITOL [Concomitant]

REACTIONS (3)
  - Dyspnoea [None]
  - Device defective [None]
  - Incorrect dose administered by device [None]

NARRATIVE: CASE EVENT DATE: 20200920
